FAERS Safety Report 15099113 (Version 2)
Quarter: 2018Q3

REPORT INFORMATION
  Report Type: Report from Study
  Country: US (occurrence: US)
  Receive Date: 20180702
  Receipt Date: 20180703
  Transmission Date: 20181010
  Serious: Yes (Other)
  Sender: FDA-Public Use
  Company Number: US-GILEAD-2018-0347852

PATIENT
  Age: 85 Year
  Sex: Male

DRUGS (1)
  1. RANOLAZINE. [Suspect]
     Active Substance: RANOLAZINE
     Indication: ANGINA PECTORIS
     Dosage: 1000 MG, BID
     Route: 048

REACTIONS (6)
  - Coronary artery disease [Recovering/Resolving]
  - Coronary angioplasty [Recovering/Resolving]
  - Cerebrovascular accident [Recovering/Resolving]
  - Off label use [Not Recovered/Not Resolved]
  - Hypertensive cardiomyopathy [Recovering/Resolving]
  - Peripheral arterial occlusive disease [Recovering/Resolving]
